FAERS Safety Report 14612345 (Version 1)
Quarter: 2018Q1

REPORT INFORMATION
  Report Type: Spontaneous
  Country: US (occurrence: US)
  Receive Date: 20180307
  Receipt Date: 20180307
  Transmission Date: 20180509
  Serious: Yes (Hospitalization)
  Sender: FDA-Public Use
  Company Number: None

PATIENT
  Age: 60 Year
  Sex: Male

DRUGS (22)
  1. TASIGNA [Suspect]
     Active Substance: NILOTINIB
     Indication: MYELOID LEUKAEMIA
     Route: 048
     Dates: start: 20170515
  2. LEVEITACETA [Concomitant]
  3. OXYCODONE [Concomitant]
     Active Substance: OXYCODONE
  4. CHLORHEX [Concomitant]
  5. AZITHROMYCIN ANHYDROUS. [Concomitant]
     Active Substance: AZITHROMYCIN ANHYDROUS
  6. TYENOL [Concomitant]
  7. CARBAMAZEPIN [Concomitant]
     Active Substance: CARBAMAZEPINE
  8. DESENEX NOS [Concomitant]
     Active Substance: CLOTRIMAZOLE OR MICONAZOLE NITRATE
  9. BACLOFEN. [Concomitant]
     Active Substance: BACLOFEN
  10. LIDOCAINE. [Concomitant]
     Active Substance: LIDOCAINE
  11. LEVOFLOXACIN. [Concomitant]
     Active Substance: LEVOFLOXACIN
  12. LYRICA [Concomitant]
     Active Substance: PREGABALIN
  13. PENTANYL [Concomitant]
  14. IBUPROFEN. [Concomitant]
     Active Substance: IBUPROFEN
  15. LAMOTRIGINE. [Concomitant]
     Active Substance: LAMOTRIGINE
  16. SERTRALINE [Concomitant]
     Active Substance: SERTRALINE HYDROCHLORIDE
  17. LAMOTRIGINE. [Concomitant]
     Active Substance: LAMOTRIGINE
  18. PREDNSONE [Concomitant]
  19. TEGRETOL [Concomitant]
     Active Substance: CARBAMAZEPINE
  20. SERTRALINE [Concomitant]
     Active Substance: SERTRALINE HYDROCHLORIDE
  21. CLOTRIMBETA [Concomitant]
  22. LAMOTRIGINE. [Concomitant]
     Active Substance: LAMOTRIGINE

REACTIONS (6)
  - Pneumonia [None]
  - Trigeminal neuralgia [None]
  - Influenza [None]
  - Urinary tract infection [None]
  - Swelling [None]
  - Peripheral swelling [None]
